FAERS Safety Report 14283968 (Version 1)
Quarter: 2017Q4

REPORT INFORMATION
  Report Type: Spontaneous
  Country: CH (occurrence: CH)
  Receive Date: 20171214
  Receipt Date: 20171214
  Transmission Date: 20180321
  Serious: Yes (Death, Hospitalization, Other)
  Sender: FDA-Public Use
  Company Number: CH-009507513-1711CHE004880

PATIENT
  Age: 63 Year
  Sex: Female

DRUGS (1)
  1. KEYTRUDA [Suspect]
     Active Substance: PEMBROLIZUMAB
     Indication: ENDOMETRIAL CANCER
     Dosage: UNK
     Dates: start: 201710, end: 201710

REACTIONS (3)
  - Off label use [Unknown]
  - Pneumonia [Fatal]
  - General physical health deterioration [Unknown]

NARRATIVE: CASE EVENT DATE: 2017
